FAERS Safety Report 4944162-6 (Version None)
Quarter: 2006Q1

REPORT INFORMATION
  Report Type: 
  Country: None (occurrence: None)
  Receive Date: 20060315
  Receipt Date: 20060308
  Transmission Date: 20060701
  Serious: Yes (Life-Threatening)
  Sender: FDA-Public Use
  Company Number: 2006AP01145

PATIENT
  Age: 44 Year
  Sex: Male

DRUGS (2)
  1. XYLOCAINE [Suspect]
     Indication: INFILTRATION ANAESTHESIA
     Dosage: 0.5% 5 ML
     Route: 050
     Dates: start: 20060306, end: 20060306
  2. RINDERON [Concomitant]
     Route: 050
     Dates: start: 20060306, end: 20060306

REACTIONS (3)
  - BLOOD PRESSURE DECREASED [None]
  - LOSS OF CONSCIOUSNESS [None]
  - MUSCULOSKELETAL STIFFNESS [None]
